FAERS Safety Report 5940609-7 (Version None)
Quarter: 2008Q4

REPORT INFORMATION
  Report Type: 
  Country: None (occurrence: None)
  Receive Date: 20081103
  Receipt Date: 20081103
  Transmission Date: 20090506
  Serious: No
  Sender: FDA-Public Use
  Company Number: None

PATIENT
  Age: 94 Year
  Sex: Female
  Weight: 58.9676 kg

DRUGS (1)
  1. LEVAQUIN [Suspect]
     Indication: PNEUMONIA
     Dosage: (1) TAB PO 10 DAYS DAILY HAD 3 DOSE
     Route: 048

REACTIONS (3)
  - DYSPHAGIA [None]
  - LIP SWELLING [None]
  - SWOLLEN TONGUE [None]
